FAERS Safety Report 24842561 (Version 1)
Quarter: 2025Q1

REPORT INFORMATION
  Report Type: Spontaneous
  Country: GB (occurrence: GB)
  Receive Date: 20250115
  Receipt Date: 20250115
  Transmission Date: 20250408
  Serious: Yes (Other)
  Sender: TEVA
  Company Number: None

PATIENT
  Age: 66 Year
  Sex: Male
  Weight: 98 kg

DRUGS (5)
  1. EZETIMIBE [Suspect]
     Active Substance: EZETIMIBE
     Indication: Product used for unknown indication
     Dosage: ONE TO BE TAKEN ONCE DAILY, DAILY DOSE: 10 MG DAILY
     Route: 065
     Dates: start: 20241209
  2. BEMPEDOIC ACID [Suspect]
     Active Substance: BEMPEDOIC ACID
     Indication: Product used for unknown indication
     Dosage: ONE TO BE TAKEN ONCE DAILY, DAILY DOSE: 180MG DAILY
     Route: 065
     Dates: start: 20241209
  3. FAMOTIDINE [Concomitant]
     Active Substance: FAMOTIDINE
     Indication: Product used for unknown indication
     Dosage: 20MG TWICE A DAY
     Route: 065
  4. BESAVAR XL [Concomitant]
     Indication: Product used for unknown indication
     Dosage: ONE A DAY
     Route: 065
  5. BISOPROLOL [Concomitant]
     Active Substance: BISOPROLOL
     Indication: Product used for unknown indication
     Dosage: 2.5MG EACH
     Route: 065

REACTIONS (1)
  - Hypocalcaemia [Recovered/Resolved]
